FAERS Safety Report 10310135 (Version 1)
Quarter: 2014Q3

REPORT INFORMATION
  Report Type: Spontaneous
  Country: US (occurrence: None)
  Receive Date: 20140715
  Receipt Date: 20140715
  Transmission Date: 20150326
  Serious: Yes (Disabling)
  Sender: FDA-Public Use
  Company Number: None

PATIENT
  Age: 25 Year
  Sex: Female

DRUGS (1)
  1. MIRENA [Suspect]
     Active Substance: LEVONORGESTREL

REACTIONS (7)
  - Exposure during pregnancy [None]
  - Shortened cervix [None]
  - Amniotic fluid volume decreased [None]
  - Panic attack [None]
  - Depression [None]
  - Blighted ovum [None]
  - Abortion induced [None]
